FAERS Safety Report 8231715-5 (Version None)
Quarter: 2012Q1

REPORT INFORMATION
  Report Type: 
  Country: None (occurrence: None)
  Receive Date: 20120323
  Receipt Date: 20120316
  Transmission Date: 20120608
  Serious: Yes (Other)
  Sender: FDA-Public Use
  Company Number: US-PFIZER INC-2012047531

PATIENT
  Sex: Male

DRUGS (4)
  1. SINGULAIR [Concomitant]
     Indication: HYPERSENSITIVITY
     Dosage: 5 MG, DAILY
  2. TENEX [Concomitant]
     Indication: OBSESSIVE-COMPULSIVE DISORDER
     Dosage: 1 MG, 2X/DAY
  3. CONCERTA [Concomitant]
     Indication: ATTENTION DEFICIT/HYPERACTIVITY DISORDER
     Dosage: 90 MG, PER DAY
  4. BENEFIX [Suspect]
     Indication: PROPHYLAXIS
     Dosage: 3720 IU, 2X/WEEK
     Route: 042

REACTIONS (1)
  - HEPATITIS C [None]
